FAERS Safety Report 5964175-5 (Version None)
Quarter: 2008Q4

REPORT INFORMATION
  Report Type: 
  Country: None (occurrence: None)
  Receive Date: 20081124
  Receipt Date: 20081114
  Transmission Date: 20090506
  Serious: Yes (Other)
  Sender: FDA-Public Use
  Company Number: US-AMGEN-US313505

PATIENT
  Sex: Female
  Weight: 88.8 kg

DRUGS (15)
  1. ARANESP [Suspect]
     Indication: RENAL FAILURE CHRONIC
     Route: 058
     Dates: start: 20070301, end: 20070825
  2. NORTRIPTYLINE HCL [Suspect]
     Dates: start: 20060807, end: 20081001
  3. ACTONEL [Concomitant]
     Dates: start: 20060807
  4. ASPIRIN [Concomitant]
     Dates: start: 20070807
  5. CALCIUM/ERGOCALCIFEROL [Concomitant]
     Dates: start: 20060807
  6. FLOVENT [Concomitant]
     Dates: start: 20060807
  7. FLUDROCORTISONE ACETATE [Concomitant]
     Dates: start: 20060807
  8. FOLIC ACID [Concomitant]
     Dates: start: 20060807
  9. FUROSEMIDE [Concomitant]
     Dates: start: 20060807
  10. LEVOXYL [Concomitant]
     Dates: start: 20060807
  11. TEMAZEPAM [Concomitant]
     Dates: start: 20060807
  12. MULTI-VITAMINS [Concomitant]
     Dates: start: 20060807
  13. NEXIUM [Concomitant]
  14. PREDNISONE TAB [Concomitant]
  15. LUNESTA [Concomitant]

REACTIONS (2)
  - APLASIA PURE RED CELL [None]
  - BONE MARROW FAILURE [None]
